FAERS Safety Report 5650270-7 (Version None)
Quarter: 2008Q1

REPORT INFORMATION
  Report Type: 
  Country: None (occurrence: None)
  Receive Date: 20080131
  Receipt Date: 20071217
  Transmission Date: 20080703
  Serious: No
  Sender: FDA-Public Use
  Company Number: US200712003417

PATIENT
  Age: 58 Year
  Sex: Male

DRUGS (2)
  1. BYETTA [Suspect]
     Indication: TYPE 2 DIABETES MELLITUS
     Dosage: 5 UG, 2/D, SUBCUTANEOUS
     Route: 058
     Dates: start: 20071208
  2. GLUCOPHAGE [Concomitant]

REACTIONS (2)
  - BLOOD GLUCOSE INCREASED [None]
  - INCISION SITE PAIN [None]
